FAERS Safety Report 13656745 (Version 1)
Quarter: 2017Q2

REPORT INFORMATION
  Report Type: Spontaneous
  Country: None (occurrence: NZ)
  Receive Date: 20170615
  Receipt Date: 20170615
  Transmission Date: 20170830
  Serious: No
  Sender: FDA-Public Use
  Company Number: NZ-ALLERGAN-1663517US

PATIENT
  Age: 66 Year
  Sex: Female

DRUGS (5)
  1. OVESTIN [Concomitant]
     Active Substance: ESTRIOL
  2. ATORVASTATIN [Concomitant]
     Active Substance: ATORVASTATIN
  3. BENDROFLUAZIDE [Concomitant]
     Active Substance: BENDROFLUMETHIAZIDE
  4. OXYTROL [Suspect]
     Active Substance: OXYBUTYNIN
     Indication: PRODUCT USED FOR UNKNOWN INDICATION
     Dosage: UNK, Q WEEK
     Route: 062
     Dates: start: 20160419, end: 20160707
  5. CANDESARTAN. [Concomitant]
     Active Substance: CANDESARTAN

REACTIONS (1)
  - Rash generalised [Not Recovered/Not Resolved]
